FAERS Safety Report 18806477 (Version 1)
Quarter: 2021Q1

REPORT INFORMATION
  Report Type: Spontaneous
  Country: GB (occurrence: GB)
  Receive Date: 20210129
  Receipt Date: 20210129
  Transmission Date: 20210419
  Serious: Yes (Disabling, Other)
  Sender: FDA-Public Use
  Company Number: GB-ASTRAZENECA-2021A013537

PATIENT
  Age: 66 Year
  Sex: Female
  Weight: 85.3 kg

DRUGS (3)
  1. TRAVATAN [Concomitant]
     Active Substance: TRAVOPROST
  2. VITAMIN D3 [Concomitant]
     Active Substance: CHOLECALCIFEROL
  3. PULMICORT TURBUHALER [Suspect]
     Active Substance: BUDESONIDE
     Indication: ASTHMA
     Dosage: 1 PUFF, TWO TIMES A DAY
     Route: 055
     Dates: start: 20200505

REACTIONS (6)
  - Heart rate increased [Recovering/Resolving]
  - Headache [Recovering/Resolving]
  - Palpitations [Recovering/Resolving]
  - Vision blurred [Not Recovered/Not Resolved]
  - Dyspnoea [Recovering/Resolving]
  - Chest discomfort [Recovering/Resolving]

NARRATIVE: CASE EVENT DATE: 202006
